FAERS Safety Report 10382179 (Version 1)
Quarter: 2014Q3

REPORT INFORMATION
  Report Type: Report from Study
  Country: US (occurrence: US)
  Receive Date: 20140813
  Receipt Date: 20140813
  Transmission Date: 20150326
  Serious: Yes (Hospitalization)
  Sender: FDA-Public Use
  Company Number: US-VERTEX PHARMACEUTICALS INC-2014-003437

PATIENT
  Age: 17 Year
  Sex: Female

DRUGS (1)
  1. IVACAFTOR [Suspect]
     Active Substance: IVACAFTOR
     Indication: CYSTIC FIBROSIS
     Dosage: UNK
     Route: 065
     Dates: start: 20120227

REACTIONS (2)
  - Wheezing [Not Recovered/Not Resolved]
  - Respiratory tract irritation [Not Recovered/Not Resolved]

NARRATIVE: CASE EVENT DATE: 20140710
